FAERS Safety Report 6302883-7 (Version None)
Quarter: 2009Q3

REPORT INFORMATION
  Report Type: 
  Country: None (occurrence: None)
  Receive Date: 20090810
  Receipt Date: 20090803
  Transmission Date: 20100115
  Serious: Yes (Other)
  Sender: FDA-Public Use
  Company Number: BR-AVENTIS-200918238GDDC

PATIENT
  Age: 56 Year
  Sex: Male
  Weight: 90 kg

DRUGS (15)
  1. LANTUS [Suspect]
     Dosage: DOSE: 70 IU QAM + 35 IU AT NIGHT
     Route: 058
  2. OPTIPEN (INSULIN PUMP) [Suspect]
     Route: 058
     Dates: end: 20090101
  3. ASPIRIN [Concomitant]
     Dosage: DOSE QUANTITY: 2
     Route: 048
  4. ALDACTONE [Concomitant]
     Dosage: DOSE QUANTITY: 1
     Route: 048
  5. DIGOBAL [Concomitant]
     Dosage: DOSE QUANTITY: 1
     Route: 048
  6. ATACAND [Concomitant]
     Dosage: DOSE QUANTITY: 2
     Route: 048
  7. CARVEDILOL [Concomitant]
     Dosage: DOSE QUANTITY: 2
     Route: 048
  8. LASIX [Concomitant]
     Dosage: DOSE QUANTITY: 2
     Route: 048
  9. CITALOR [Concomitant]
     Dosage: DOSE QUANTITY: 1
     Route: 048
  10. VASTAREL [Concomitant]
     Dosage: DOSE QUANTITY: 2
     Route: 048
  11. MONOCORDIL [Concomitant]
     Dosage: DOSE QUANTITY: 1
     Route: 048
  12. PONDERA [Concomitant]
     Dosage: DOSE QUANTITY: 2
     Route: 048
  13. ALPRAZOLAM [Concomitant]
     Dosage: DOSE QUANTITY: 2
     Route: 048
  14. RANITIDINE [Concomitant]
     Dosage: DOSE QUANTITY: 2
     Route: 048
  15. GABAPENTIN [Concomitant]
     Indication: PAIN
     Dosage: DOSE QUANTITY: 5
     Route: 048

REACTIONS (5)
  - BLOOD GLUCOSE INCREASED [None]
  - CONDITION AGGRAVATED [None]
  - EJECTION FRACTION DECREASED [None]
  - HYPERTENSION [None]
  - HYPOTENSION [None]
